FAERS Safety Report 9921902 (Version 1)
Quarter: 2014Q1

REPORT INFORMATION
  Report Type: Spontaneous
  Country: FR (occurrence: FR)
  Receive Date: 20140225
  Receipt Date: 20140225
  Transmission Date: 20141002
  Serious: Yes (Hospitalization)
  Sender: FDA-Public Use
  Company Number: FR-PFIZER INC-2014051277

PATIENT
  Age: 72 Year
  Sex: Female

DRUGS (4)
  1. EUPANTOL [Suspect]
     Indication: HIATUS HERNIA
     Dosage: 40 MG, 1X/DAY
     Route: 048
     Dates: start: 20131009, end: 20131011
  2. EUPANTOL [Suspect]
     Route: 065
  3. CYMBALTA [Suspect]
     Indication: DEPRESSION
     Dosage: 30 MG, 1X/DAY
     Route: 048
     Dates: start: 20130926, end: 20131009
  4. CYMBALTA [Suspect]
     Dosage: 60 MG, 1X/DAY
     Dates: start: 20131009, end: 20131011

REACTIONS (2)
  - Hyponatraemia [Recovered/Resolved]
  - Inappropriate antidiuretic hormone secretion [Unknown]
